FAERS Safety Report 5910992-7 (Version None)
Quarter: 2008Q4

REPORT INFORMATION
  Report Type: 
  Country: None (occurrence: None)
  Receive Date: 20081007
  Receipt Date: 20081006
  Transmission Date: 20090506
  Serious: Yes (Hospitalization)
  Sender: FDA-Public Use
  Company Number: US-BAYER-200813123BCC

PATIENT
  Age: 87 Year
  Sex: Female
  Weight: 59 kg

DRUGS (10)
  1. PHILLIPS MILK OF MAGNESIA WILD CHERRY [Suspect]
     Indication: LAXATIVE SUPPORTIVE CARE
     Dosage: TOTAL DAILY DOSE: 60 ML
     Route: 048
     Dates: start: 20060101, end: 20080714
  2. PHILLIPS MILK OF MAGNESIA WILD CHERRY [Suspect]
     Dosage: TOTAL DAILY DOSE: 60 ML
     Route: 048
     Dates: start: 20080717
  3. LISINOPRIL [Concomitant]
  4. HYDROCHLOROTHIAZIDE [Concomitant]
  5. NORVASC [Concomitant]
  6. LIPITOR [Concomitant]
  7. NEURONTIN [Concomitant]
  8. MORPHINE [Concomitant]
  9. ALPHAGAN P [Concomitant]
  10. TRAVATAN [Concomitant]

REACTIONS (6)
  - ABDOMINAL PAIN [None]
  - ANOREXIA [None]
  - INFREQUENT BOWEL MOVEMENTS [None]
  - INTESTINAL OBSTRUCTION [None]
  - RETCHING [None]
  - VOMITING [None]
